FAERS Safety Report 7118690-1 (Version None)
Quarter: 2010Q4

REPORT INFORMATION
  Report Type: 
  Country: None (occurrence: None)
  Receive Date: 20101123
  Receipt Date: 20101110
  Transmission Date: 20110411
  Serious: No
  Sender: FDA-Public Use
  Company Number: US-PFIZER INC-2010147981

PATIENT
  Sex: Female

DRUGS (1)
  1. PRISTIQ [Suspect]
     Dosage: 50 MG, 1X/DAY
     Dates: start: 20100301

REACTIONS (4)
  - ANGER [None]
  - FATIGUE [None]
  - IMPAIRED WORK ABILITY [None]
  - MALAISE [None]
